FAERS Safety Report 26020867 (Version 1)
Quarter: 2025Q4

REPORT INFORMATION
  Report Type: Spontaneous
  Country: TR (occurrence: TR)
  Receive Date: 20251110
  Receipt Date: 20251110
  Transmission Date: 20260118
  Serious: Yes (Other)
  Sender: OTSUKA
  Company Number: TR-MMM-Otsuka-IYQTODU0

PATIENT
  Age: 84 Year

DRUGS (4)
  1. REXULTI [Suspect]
     Active Substance: BREXPIPRAZOLE
     Indication: Dementia
     Dosage: 2 MG, QD
     Route: 065
  2. REXULTI [Suspect]
     Active Substance: BREXPIPRAZOLE
     Dosage: 0.5 MG, QD
     Route: 065
  3. Donepezil, Memantine [Concomitant]
     Indication: Dementia
     Dosage: UNK
     Route: 065
  4. MEMANTINE [Concomitant]
     Active Substance: MEMANTINE
     Indication: Dementia
     Dosage: UNK
     Route: 065

REACTIONS (3)
  - Delirium [Unknown]
  - Weight decreased [Unknown]
  - Restlessness [Unknown]
